FAERS Safety Report 24333656 (Version 1)
Quarter: 2024Q3

REPORT INFORMATION
  Report Type: Report from Study
  Country: IN (occurrence: IN)
  Receive Date: 20240918
  Receipt Date: 20240918
  Transmission Date: 20241017
  Serious: Yes (Death)
  Sender: ROCHE
  Company Number: IN-002147023-NVSC2024IN183848

PATIENT
  Age: 90 Year
  Sex: Male

DRUGS (2)
  1. RANIBIZUMAB [Suspect]
     Active Substance: RANIBIZUMAB
     Indication: Neovascular age-related macular degeneration
     Dosage: 0.5 MG, QMO
     Route: 050
     Dates: start: 20231007
  2. RANIBIZUMAB [Suspect]
     Active Substance: RANIBIZUMAB
     Dosage: 0.5 MG, INTRAVITREAL
     Route: 050

REACTIONS (1)
  - Death [Fatal]

NARRATIVE: CASE EVENT DATE: 20240301
